FAERS Safety Report 6522271-8 (Version None)
Quarter: 2009Q4

REPORT INFORMATION
  Report Type: 
  Country: None (occurrence: None)
  Receive Date: 20091230
  Receipt Date: 20091228
  Transmission Date: 20100525
  Serious: Yes (Life-Threatening, Other)
  Sender: FDA-Public Use
  Company Number: FR-JNJFOC-20091206883

PATIENT
  Age: 36 Year
  Sex: Male

DRUGS (3)
  1. EPITOMAX [Suspect]
     Indication: POST-TRAUMATIC EPILEPSY
     Dosage: 75-0-100
     Route: 048
  2. TEGRETOL [Suspect]
     Indication: POST-TRAUMATIC EPILEPSY
     Dosage: 600-0-500
  3. FLUINDIONE [Concomitant]
     Indication: PULMONARY EMBOLISM
     Route: 065

REACTIONS (2)
  - ANTIPHOSPHOLIPID SYNDROME [None]
  - PULMONARY EMBOLISM [None]
